FAERS Safety Report 23539937 (Version 1)
Quarter: 2024Q1

REPORT INFORMATION
  Report Type: Spontaneous
  Country: AT (occurrence: AT)
  Receive Date: 20240219
  Receipt Date: 20240219
  Transmission Date: 20240410
  Serious: Yes (Hospitalization, Other)
  Sender: FDA-Public Use
  Company Number: AT-ABBVIE-5613945

PATIENT
  Age: 68 Year
  Sex: Male

DRUGS (5)
  1. ADALIMUMAB [Suspect]
     Active Substance: ADALIMUMAB\ISOPROPYL ALCOHOL
     Indication: Crohn^s disease
     Route: 058
     Dates: end: 202311
  2. RINVOQ [Suspect]
     Active Substance: UPADACITINIB
     Indication: Crohn^s disease
     Route: 048
     Dates: end: 202401
  3. Piperazillin/Tazobactam [Concomitant]
     Indication: Product used for unknown indication
  4. PREDNISOLONE [Concomitant]
     Active Substance: PREDNISOLONE
     Indication: Product used for unknown indication
  5. GANCICLOVIR [Concomitant]
     Active Substance: GANCICLOVIR
     Indication: Product used for unknown indication

REACTIONS (12)
  - Cytomegalovirus test positive [Unknown]
  - Endotracheal intubation [Unknown]
  - General physical health deterioration [Unknown]
  - Joint stiffness [Unknown]
  - Subileus [Unknown]
  - Ulcer [Unknown]
  - Stenosis [Unknown]
  - Joint swelling [Unknown]
  - Joint stiffness [Unknown]
  - Joint swelling [Unknown]
  - Respiratory tract infection [Unknown]
  - Pneumonia [Unknown]

NARRATIVE: CASE EVENT DATE: 20230801
